FAERS Safety Report 5598042-6 (Version None)
Quarter: 2008Q1

REPORT INFORMATION
  Report Type: 
  Country: None (occurrence: None)
  Receive Date: 20080116
  Receipt Date: 20080102
  Transmission Date: 20080703
  Serious: Yes (Other)
  Sender: FDA-Public Use
  Company Number: 100#08#2008-00086

PATIENT
  Age: 57 Year
  Sex: Male

DRUGS (1)
  1. CABERGOLINE [Suspect]
     Indication: PROLACTINOMA
     Dosage: 0.5 MG THREE TIMES A WEEK 10 DAYS UNTIL ONSET

REACTIONS (4)
  - HEARING IMPAIRED [None]
  - INTRACRANIAL HYPOTENSION [None]
  - MIDDLE EAR EFFUSION [None]
  - RHINORRHOEA [None]
